FAERS Safety Report 4379860-9 (Version None)
Quarter: 2004Q2

REPORT INFORMATION
  Report Type: 
  Country: None (occurrence: None)
  Receive Date: 20040614
  Receipt Date: 20040601
  Transmission Date: 20050107
  Serious: Yes (Hospitalization)
  Sender: FDA-Public Use
  Company Number: 2004PK00990

PATIENT
  Age: 80 Year
  Sex: Female
  Weight: 77 kg

DRUGS (8)
  1. ARIMIDEX [Suspect]
     Indication: BREAST CANCER
     Dosage: 1 MG DAILY
     Dates: start: 19990624
  2. MAGNESIUM VERLA DRAGEES [Concomitant]
  3. ACECOMB [Concomitant]
  4. TOLVON [Concomitant]
  5. BERODUAL [Concomitant]
  6. RESPICUR [Concomitant]
  7. TRAMAL [Concomitant]
  8. DOMINAL [Concomitant]

REACTIONS (2)
  - DEPRESSION [None]
  - VERTIGO [None]
